APPROVED DRUG PRODUCT: ACITRETIN
Active Ingredient: ACITRETIN
Strength: 17.5MG
Dosage Form/Route: CAPSULE;ORAL
Application: A204633 | Product #002 | TE Code: AB
Applicant: SIGMAPHARM LABORATORIES LLC
Approved: May 22, 2015 | RLD: No | RS: No | Type: RX